FAERS Safety Report 11268842 (Version 4)
Quarter: 2016Q3

REPORT INFORMATION
  Report Type: Spontaneous
  Country: US (occurrence: US)
  Receive Date: 20150714
  Receipt Date: 20160912
  Transmission Date: 20161109
  Serious: Yes (Hospitalization, Other)
  Sender: FDA-Public Use
  Company Number: US-JNJFOC-20150705750

PATIENT
  Age: 64 Year
  Sex: Male

DRUGS (1)
  1. XARELTO [Suspect]
     Active Substance: RIVAROXABAN
     Indication: MYOCARDIAL INFARCTION
     Dosage: 10-20 MG APPROXIMATELY
     Route: 048
     Dates: start: 201412, end: 201502

REACTIONS (5)
  - Product use issue [Unknown]
  - Internal haemorrhage [Unknown]
  - Penile haemorrhage [Unknown]
  - Haemorrhagic stroke [Unknown]
  - Off label use [Unknown]

NARRATIVE: CASE EVENT DATE: 201412
